FAERS Safety Report 10559860 (Version 3)
Quarter: 2015Q1

REPORT INFORMATION
  Report Type: Spontaneous
  Country: US (occurrence: None)
  Receive Date: 20141030
  Receipt Date: 20150116
  Transmission Date: 20150720
  Serious: Yes (Life-Threatening, Hospitalization, Other)
  Sender: FDA-Public Use
  Company Number: ADR-2014-01993

PATIENT
  Age: 60 Year
  Sex: Male

DRUGS (16)
  1. FUROSEMIDE. [Suspect]
     Active Substance: FUROSEMIDE
     Dosage: BY MOUTH
     Route: 048
  2. POTASSIUM CHLORIDE. [Suspect]
     Active Substance: POTASSIUM CHLORIDE
     Dosage: 20 MEQ TABLET SUSTAINED RELEASE BY MOUTH DAILY WITH EVENING MEAL
  3. PROPRANOLOL [Suspect]
     Active Substance: PROPRANOLOL\PROPRANOLOL HYDROCHLORIDE
     Route: 048
  4. OXYCODONE [Suspect]
     Active Substance: OXYCODONE
     Indication: PAIN
     Dosage: 5 MG TABLET BY MOUTH EVERY 4 HOURS AS NEEDED FOR PAIN
     Route: 048
  5. PROCHLORPERAZINE MALEATE. [Suspect]
     Active Substance: PROCHLORPERAZINE MALEATE
     Dosage: 5 MG TABLET BY MOUTH EVERY SIX HOURS AS NEEDED
     Route: 048
  6. INSULIN DETEMIR [Suspect]
     Active Substance: INSULIN DETEMIR
     Dosage: (100 UNIT/ML SOLUTION) 30 UNITS AT BEDTIME
     Route: 058
  7. LACTULOSE. [Suspect]
     Active Substance: LACTULOSE
     Dosage: 10 GRAM/15 ML SOLUTION, 45 MILLILITERS BY MOUTH IN THE MORNING
     Route: 048
  8. BACLOFEN. [Suspect]
     Active Substance: BACLOFEN
     Indication: MUSCLE SPASTICITY
  9. INSULIN ASPART [Suspect]
     Active Substance: INSULIN ASPART
     Dosage: 100 UNIT/ML 10 UNITS TID WITH EACH MEAL
     Route: 058
  10. GLUCAGON. [Suspect]
     Active Substance: GLUCAGON
     Dosage: 2 MG INJECTION KIT SUBCUTANEOUSLY FOR HYPOGLYCEMIC EMERGENCIES
     Route: 058
  11. LANCETS [Suspect]
     Active Substance: DEVICE
  12. CITALOPRAM [Suspect]
     Active Substance: CITALOPRAM HYDROBROMIDE
     Dosage: 40 MG TABLET BY MOUTH DAILY AT BEDTIME
     Route: 048
  13. MUPIROCIN. [Suspect]
     Active Substance: MUPIROCIN
     Dosage: TOPICAL 25 OINTMENT USE AS NEEDED FOR SKIN BREAKDOWN
     Route: 061
  14. MORPHINE INTRATHECAL 50 MG/ML [Suspect]
     Active Substance: MORPHINE
     Indication: MUSCLE SPASTICITY
  15. SPIRONOLACTONE. [Suspect]
     Active Substance: SPIRONOLACTONE
     Dosage: BY MOUTH
     Route: 048
  16. PREGABALIN. [Suspect]
     Active Substance: PREGABALIN
     Route: 048

REACTIONS (37)
  - Inadequate analgesia [None]
  - Bronchopneumonia [None]
  - Dyslipidaemia [None]
  - Type 2 diabetes mellitus [None]
  - Limb amputation [None]
  - Haemoglobin decreased [None]
  - Mental status changes [None]
  - Drug screen positive [None]
  - Post laminectomy syndrome [None]
  - Hepatic encephalopathy [None]
  - Hypomagnesaemia [None]
  - Therapeutic response decreased [None]
  - Hypophosphataemia [None]
  - Chest pain [None]
  - Blood pressure diastolic decreased [None]
  - Aspiration [None]
  - Back pain [None]
  - Respiratory depression [None]
  - General physical condition abnormal [None]
  - Contusion [None]
  - Device malfunction [None]
  - Thrombocytopenia [None]
  - Neutrophil percentage increased [None]
  - Blood potassium decreased [None]
  - Lung infection [None]
  - Stent placement [None]
  - Accidental overdose [None]
  - Blood glucose increased [None]
  - Depression [None]
  - Coeliac disease [None]
  - Osteoporosis [None]
  - Diabetic neuropathy [None]
  - Diabetes mellitus [None]
  - Hepatic cirrhosis [None]
  - Portal hypertension [None]
  - Hypertension [None]
  - No therapeutic response [None]
